FAERS Safety Report 10290715 (Version 1)
Quarter: 2014Q3

REPORT INFORMATION
  Report Type: Spontaneous
  Country: US (occurrence: None)
  Receive Date: 20140708
  Receipt Date: 20140708
  Transmission Date: 20150326
  Serious: Yes (Hospitalization)
  Sender: FDA-Public Use
  Company Number: None

PATIENT
  Age: 45 Year
  Sex: Male
  Weight: 78.02 kg

DRUGS (1)
  1. SPIRIVA [Suspect]
     Active Substance: TIOTROPIUM BROMIDE MONOHYDRATE
     Indication: DRUG THERAPY
     Route: 055
     Dates: start: 20140705, end: 20140706

REACTIONS (2)
  - Asthma [None]
  - Drug hypersensitivity [None]

NARRATIVE: CASE EVENT DATE: 20140705
